FAERS Safety Report 8618769-9 (Version None)
Quarter: 2012Q3

REPORT INFORMATION
  Report Type: 
  Country: None (occurrence: None)
  Receive Date: 20120824
  Receipt Date: 20120822
  Transmission Date: 20120928
  Serious: Yes (Death, Hospitalization, Other)
  Sender: FDA-Public Use
  Company Number: JP-JNJFOC-20120600373

PATIENT
  Sex: Male
  Weight: 43 kg

DRUGS (3)
  1. KETOPROFEN [Concomitant]
     Indication: PAIN
     Route: 062
     Dates: start: 20120303, end: 20120409
  2. TRAMADOL HCL [Suspect]
     Indication: BACK PAIN
     Dosage: 1 PER 1 DAY
     Route: 048
     Dates: start: 20120407, end: 20120409
  3. TRAMADOL HCL [Suspect]
     Indication: PAIN
     Dosage: 1 PER 1 DAY
     Route: 048
     Dates: start: 20120407, end: 20120409

REACTIONS (5)
  - GAIT DISTURBANCE [None]
  - PNEUMONIA [None]
  - DEPRESSED LEVEL OF CONSCIOUSNESS [None]
  - DIZZINESS [None]
  - BLOOD GLUCOSE DECREASED [None]
